FAERS Safety Report 4371234-X (Version None)
Quarter: 2004Q2

REPORT INFORMATION
  Report Type: 
  Country: None (occurrence: None)
  Receive Date: 20040604
  Receipt Date: 20040527
  Transmission Date: 20050107
  Serious: Yes (Life-Threatening, Hospitalization)
  Sender: FDA-Public Use
  Company Number: AU-AMGEN-AUS078236

PATIENT
  Sex: Female

DRUGS (6)
  1. NEULASTA [Suspect]
     Indication: CHEMOTHERAPY
     Dates: start: 20040518, end: 20040518
  2. RITUXIMAB [Concomitant]
     Dates: start: 20040517, end: 20040517
  3. CYCLOPHOSPHAMIDE [Concomitant]
     Dates: start: 20040517, end: 20040517
  4. VINCRISTINE [Concomitant]
     Dates: start: 20040517, end: 20040517
  5. PREDNISOLONE [Concomitant]
     Dates: start: 20040517, end: 20040517
  6. CORTICOSTEROID NOS [Concomitant]

REACTIONS (5)
  - DRUG INEFFECTIVE [None]
  - NEUTROPHIL COUNT DECREASED [None]
  - SEPTIC SHOCK [None]
  - THERAPY NON-RESPONDER [None]
  - WHITE BLOOD CELL COUNT DECREASED [None]
